FAERS Safety Report 11197441 (Version 2)
Quarter: 2015Q2

REPORT INFORMATION
  Report Type: Spontaneous
  Country: CA (occurrence: CA)
  Receive Date: 20150617
  Receipt Date: 20150619
  Transmission Date: 20150821
  Serious: Yes (Other)
  Sender: FDA-Public Use
  Company Number: CA-GLAXOSMITHKLINE INC.-CA2015GSK083699

PATIENT
  Sex: Female

DRUGS (1)
  1. BENLYSTA [Suspect]
     Active Substance: BELIMUMAB
     Indication: SYSTEMIC LUPUS ERYTHEMATOSUS
     Dosage: 500 MG, UNK

REACTIONS (11)
  - Ill-defined disorder [Unknown]
  - Fatigue [Unknown]
  - Lacrimation increased [Unknown]
  - Insomnia [Unknown]
  - Sensitisation [Unknown]
  - Depressed mood [Unknown]
  - Mood altered [Unknown]
  - Dizziness [Unknown]
  - Off label use [Unknown]
  - Pericarditis lupus [Unknown]
  - Amenorrhoea [Unknown]
